FAERS Safety Report 5512001-0 (Version None)
Quarter: 2007Q4

REPORT INFORMATION
  Report Type: 
  Country: None (occurrence: None)
  Receive Date: 20071109
  Receipt Date: 20071030
  Transmission Date: 20080405
  Serious: Yes (Hospitalization, Other)
  Sender: FDA-Public Use
  Company Number: US-MERCK-0707USA02568

PATIENT
  Age: 5 Year
  Sex: Male
  Weight: 20 kg

DRUGS (2)
  1. SINGULAIR [Suspect]
     Indication: ASTHMA
     Route: 048
     Dates: start: 20000101, end: 20070101
  2. SINGULAIR [Suspect]
     Route: 065
     Dates: start: 20070101

REACTIONS (4)
  - DERMATITIS ATOPIC [None]
  - DISTURBANCE IN ATTENTION [None]
  - INSOMNIA [None]
  - OVERDOSE [None]
